FAERS Safety Report 23789373 (Version 3)
Quarter: 2024Q2

REPORT INFORMATION
  Report Type: Spontaneous
  Country: US (occurrence: US)
  Receive Date: 20240426
  Receipt Date: 20240507
  Transmission Date: 20240715
  Serious: No
  Sender: FDA-Public Use
  Company Number: US-PFIZER INC-202400094669

PATIENT
  Age: 63 Year
  Sex: Male

DRUGS (4)
  1. VELSIPITY [Interacting]
     Active Substance: ETRASIMOD ARGININE
     Dosage: 2 MG
  2. DOFETILIDE [Interacting]
     Active Substance: DOFETILIDE
     Dosage: UNK
  3. METOPROLOL TARTRATE [Interacting]
     Active Substance: METOPROLOL TARTRATE
     Dosage: UNK
  4. PLAVIX [Interacting]
     Active Substance: CLOPIDOGREL BISULFATE
     Dosage: UNK

REACTIONS (1)
  - Drug interaction [Unknown]
